FAERS Safety Report 15266985 (Version 1)
Quarter: 2018Q3

REPORT INFORMATION
  Report Type: Spontaneous
  Country: US (occurrence: US)
  Receive Date: 20180810
  Receipt Date: 20180810
  Transmission Date: 20181010
  Serious: No
  Sender: FDA-Public Use
  Company Number: US-SHIRE-US201827613

PATIENT
  Sex: Female

DRUGS (3)
  1. GATTEX [Suspect]
     Active Substance: TEDUGLUTIDE\WATER
     Indication: SHORT-BOWEL SYNDROME
     Dosage: 0.280 UKN, 1X/DAY:QD
     Route: 065
     Dates: start: 20180223
  2. LOMOTIL [Concomitant]
     Active Substance: ATROPINE SULFATE\DIPHENOXYLATE HYDROCHLORIDE
     Indication: DIARRHOEA
  3. CODEINE [Concomitant]
     Active Substance: CODEINE
     Indication: DIARRHOEA

REACTIONS (1)
  - Urine abnormality [Unknown]
